FAERS Safety Report 5947611-X (Version None)
Quarter: 2008Q4

REPORT INFORMATION
  Report Type: 
  Country: None (occurrence: None)
  Receive Date: 20081106
  Receipt Date: 20081023
  Transmission Date: 20090506
  Serious: Yes (Other)
  Sender: FDA-Public Use
  Company Number: TRP_05901_2008

PATIENT
  Sex: Female

DRUGS (4)
  1. RIBASPHERE [Suspect]
     Indication: HEPATITIS C
     Dosage: (DF ORAL)
     Route: 048
  2. RIBAVIRIN [Suspect]
     Indication: HEPATITIS C
     Dosage: (ORAL)
     Route: 048
     Dates: end: 20080501
  3. PEGASYS [Suspect]
     Indication: HEPATITIS C
     Dosage: (180 ?G    1X/WEEK SUBCUTANEOUS)
     Route: 058
     Dates: start: 20070602, end: 20080501
  4. COPEGUS [Suspect]
     Indication: HEPATITIS C
     Dosage: (1000 MG ORAL)
     Route: 048
     Dates: start: 20070602

REACTIONS (20)
  - ALOPECIA [None]
  - ANXIETY [None]
  - ARTHRALGIA [None]
  - BASEDOW'S DISEASE [None]
  - CONFUSIONAL STATE [None]
  - CRYING [None]
  - DEPRESSION [None]
  - DIZZINESS [None]
  - DRUG ERUPTION [None]
  - HAEMORRHAGE [None]
  - HYPOTHYROIDISM [None]
  - INSOMNIA [None]
  - JOINT SWELLING [None]
  - NERVOUSNESS [None]
  - OEDEMA PERIPHERAL [None]
  - PAIN IN EXTREMITY [None]
  - RASH GENERALISED [None]
  - RASH PRURITIC [None]
  - TREMOR [None]
  - VISION BLURRED [None]
